FAERS Safety Report 6791363-0 (Version None)
Quarter: 2010Q2

REPORT INFORMATION
  Report Type: 
  Country: None (occurrence: None)
  Receive Date: 20100624
  Receipt Date: 20100601
  Transmission Date: 20101027
  Serious: Yes (Other)
  Sender: FDA-Public Use
  Company Number: US-ABBOTT-10P-163-0647963-00

PATIENT
  Sex: Female

DRUGS (1)
  1. LUPRON DEPOT [Suspect]
     Indication: DRUG USE FOR UNKNOWN INDICATION

REACTIONS (6)
  - DRY SKIN [None]
  - HOT FLUSH [None]
  - METASTATIC PAIN [None]
  - MOOD ALTERED [None]
  - NIGHT SWEATS [None]
  - OOPHORECTOMY [None]
